FAERS Safety Report 7704092-3 (Version None)
Quarter: 2011Q3

REPORT INFORMATION
  Report Type: 
  Country: None (occurrence: None)
  Receive Date: 20110823
  Receipt Date: 20110819
  Transmission Date: 20111222
  Serious: Yes (Hospitalization)
  Sender: FDA-Public Use
  Company Number: DE-PFIZER INC-2011191660

PATIENT
  Age: 40 Year
  Sex: Female
  Weight: 67 kg

DRUGS (3)
  1. CABASERIL [Suspect]
     Indication: PITUITARY TUMOUR BENIGN
     Dosage: 5 MG, WEEKLY
     Route: 048
     Dates: start: 20090101
  2. LEVOTHYROXINE SODIUM [Concomitant]
     Indication: HYPOTHYROIDISM
     Dosage: 1 DF, 1X/DAY
  3. RAMIPRIL [Concomitant]
     Indication: HYPERTENSION
     Dosage: 2 DF, 1X/DAY

REACTIONS (1)
  - BREAST ABSCESS [None]
